FAERS Safety Report 23432850 (Version 1)
Quarter: 2024Q1

REPORT INFORMATION
  Report Type: Spontaneous
  Country: US (occurrence: None)
  Receive Date: 20240123
  Receipt Date: 20240123
  Transmission Date: 20240410
  Serious: No
  Sender: FDA-Public Use
  Company Number: None

PATIENT
  Sex: Male

DRUGS (2)
  1. HUMIRA [Suspect]
     Active Substance: ADALIMUMAB
     Indication: Psoriasis
     Dosage: 40MG EVERY 14 DAYS SQ?
     Route: 058
     Dates: start: 202312
  2. HUMIRA PEN START PS/UV [Concomitant]

REACTIONS (3)
  - Eczema [None]
  - Rash erythematous [None]
  - Drug ineffective [None]
